FAERS Safety Report 10686376 (Version 3)
Quarter: 2015Q1

REPORT INFORMATION
  Report Type: Report from Study
  Country: US (occurrence: US)
  Receive Date: 20141231
  Receipt Date: 20150202
  Transmission Date: 20150720
  Serious: Yes (Hospitalization)
  Sender: FDA-Public Use
  Company Number: US-ACTELION-A-US2014-109969

PATIENT
  Age: 53 Year
  Sex: Male

DRUGS (2)
  1. VELETRI [Suspect]
     Active Substance: EPOPROSTENOL
     Indication: PULMONARY ARTERIAL HYPERTENSION
     Dosage: 12.08 NG/KG, PER MIN
     Route: 041
     Dates: start: 20141121
  2. VELETRI [Suspect]
     Active Substance: EPOPROSTENOL
     Dosage: 14.38 NG/KG, PER MIN
     Route: 041
     Dates: start: 20141206

REACTIONS (8)
  - Oedema [Unknown]
  - Cough [Unknown]
  - Syncope [Unknown]
  - Respiratory failure [Unknown]
  - Dyspnoea [Unknown]
  - Headache [Unknown]
  - Diarrhoea [Unknown]
  - Tachycardia [Unknown]

NARRATIVE: CASE EVENT DATE: 20141219
